FAERS Safety Report 9356030 (Version 2)
Quarter: 2013Q2

REPORT INFORMATION
  Report Type: Report from Study
  Country: BR (occurrence: BR)
  Receive Date: 20130619
  Receipt Date: 20130621
  Transmission Date: 20140414
  Serious: Yes (Hospitalization, Other)
  Sender: FDA-Public Use
  Company Number: BR-ELI_LILLY_AND_COMPANY-BR201306004171

PATIENT
  Age: 71 Year
  Sex: Female
  Weight: 46 kg

DRUGS (3)
  1. TERIPARATIDE [Suspect]
     Indication: BONE DENSITY DECREASED
     Dosage: 20 UG, QD
     Route: 058
     Dates: start: 20120808
  2. LEVOID [Concomitant]
     Indication: THYROID DISORDER
     Dosage: 75 MG, QD
     Route: 065
  3. CALCIUM [Concomitant]
     Indication: BONE DISORDER
     Dosage: 1 DF, QD
     Route: 065

REACTIONS (8)
  - Cataract [Not Recovered/Not Resolved]
  - Abnormal sensation in eye [Not Recovered/Not Resolved]
  - Eye burns [Not Recovered/Not Resolved]
  - Headache [Not Recovered/Not Resolved]
  - Pain of skin [Unknown]
  - Poor quality sleep [Unknown]
  - Wrong technique in drug usage process [Unknown]
  - Off label use [Unknown]
